FAERS Safety Report 6707019-6 (Version None)
Quarter: 2010Q2

REPORT INFORMATION
  Report Type: 
  Country: None (occurrence: None)
  Receive Date: 20100430
  Receipt Date: 20100430
  Transmission Date: 20101027
  Serious: No
  Sender: FDA-Public Use
  Company Number: None

PATIENT
  Age: 42 Year
  Sex: Female
  Weight: 111.1313 kg

DRUGS (1)
  1. SUMATRIPTAN TABLETS 100 MG RANBAXY [Suspect]
     Indication: MIGRAINE
     Dosage: 100 MG AS NEEDED PO
     Route: 048
     Dates: start: 20100201, end: 20100302

REACTIONS (7)
  - DRUG EFFECT DECREASED [None]
  - FLUSHING [None]
  - NO THERAPEUTIC RESPONSE [None]
  - PALPITATIONS [None]
  - PRODUCT SUBSTITUTION ISSUE [None]
  - TABLET ISSUE [None]
  - WRONG TECHNIQUE IN DRUG USAGE PROCESS [None]
